FAERS Safety Report 9267557 (Version 1)
Quarter: 2013Q2

REPORT INFORMATION
  Report Type: Report from Study
  Country: JP (occurrence: JP)
  Receive Date: 20130502
  Receipt Date: 20130502
  Transmission Date: 20140414
  Serious: Yes (Other)
  Sender: FDA-Public Use
  Company Number: JP-CELGENEUS-087-21880-11062146

PATIENT
  Age: 69 Year
  Sex: Male

DRUGS (14)
  1. REVLIMID [Suspect]
     Indication: PLASMA CELL MYELOMA
     Dosage: 25 MILLIGRAM
     Route: 048
     Dates: start: 20100914, end: 20101004
  2. REVLIMID [Suspect]
     Dosage: 10 MILLIGRAM
     Route: 048
     Dates: start: 20101013, end: 20101102
  3. REVLIMID [Suspect]
     Dosage: 15 MILLIGRAM
     Route: 048
     Dates: start: 20101110, end: 20101130
  4. REVLIMID [Suspect]
     Dosage: 15 MILLIGRAM
     Route: 048
     Dates: start: 20101208, end: 20101228
  5. REVLIMID [Suspect]
     Dosage: 15 MILLIGRAM
     Route: 048
     Dates: start: 20110105, end: 20110125
  6. REVLIMID [Suspect]
     Dosage: 15 MILLIGRAM
     Route: 048
     Dates: start: 20110202, end: 20110222
  7. LENADEX [Suspect]
     Indication: PLASMA CELL MYELOMA
     Dosage: 20 MILLIGRAM
     Route: 048
     Dates: start: 20100914, end: 20100917
  8. LENADEX [Suspect]
     Dosage: 20 MILLIGRAM
     Route: 048
     Dates: start: 20100922, end: 20100925
  9. LENADEX [Suspect]
     Dosage: 20 MILLIGRAM
     Route: 048
     Dates: start: 20100930, end: 20101003
  10. LENADEX [Suspect]
     Dosage: 20 MILLIGRAM
     Route: 048
     Dates: start: 20101013, end: 20101109
  11. LENADEX [Suspect]
     Dosage: 20 MILLIGRAM
     Route: 048
     Dates: start: 20101110, end: 20101207
  12. LENADEX [Suspect]
     Dosage: 20 MILLIGRAM
     Route: 048
     Dates: start: 20101208, end: 20110104
  13. LENADEX [Suspect]
     Dosage: 12 MILLIGRAM
     Route: 048
     Dates: start: 20110105, end: 20110201
  14. LENADEX [Suspect]
     Dosage: 12 MILLIGRAM
     Route: 048
     Dates: start: 20110202, end: 20110228

REACTIONS (1)
  - Hyperglycaemia [Recovering/Resolving]
